FAERS Safety Report 4299449-X (Version None)
Quarter: 2004Q1

REPORT INFORMATION
  Report Type: 
  Country: None (occurrence: None)
  Receive Date: 20040217
  Receipt Date: 20040130
  Transmission Date: 20041129
  Serious: Yes (Life-Threatening)
  Sender: FDA-Public Use
  Company Number: S03-NOR-05335-01

PATIENT
  Age: 29 Year
  Sex: Male

DRUGS (1)
  1. CIPRAMIL(CITALOPRAM HYDROBROMIDE) [Suspect]
     Indication: DEPRESSION SUICIDAL
     Dosage: 20 MG QD PO
     Route: 048
     Dates: start: 20020722, end: 20030925

REACTIONS (3)
  - DISSOCIATION [None]
  - DRUG WITHDRAWAL SYNDROME [None]
  - SUICIDAL IDEATION [None]
